FAERS Safety Report 23232547 (Version 1)
Quarter: 2023Q4

REPORT INFORMATION
  Report Type: Spontaneous
  Country: US (occurrence: US)
  Receive Date: 20231128
  Receipt Date: 20231128
  Transmission Date: 20240109
  Serious: Yes (Other)
  Sender: FDA-Public Use
  Company Number: US-drreddys-LIT/USA/23/0187028

PATIENT
  Age: 63 Year
  Sex: Male

DRUGS (4)
  1. CYCLOPHOSPHAMIDE [Suspect]
     Active Substance: CYCLOPHOSPHAMIDE
     Indication: Keratopathy
  2. VINCRISTINE [Concomitant]
     Active Substance: VINCRISTINE
     Indication: Keratopathy
  3. PREDNISONE [Concomitant]
     Active Substance: PREDNISONE
     Indication: Keratopathy
  4. RITUXIMAB [Concomitant]
     Active Substance: RITUXIMAB
     Indication: Keratopathy

REACTIONS (3)
  - Drug ineffective for unapproved indication [Unknown]
  - Off label use [Unknown]
  - Product use in unapproved indication [Unknown]
